FAERS Safety Report 25222301 (Version 1)
Quarter: 2025Q2

REPORT INFORMATION
  Report Type: Spontaneous
  Country: FR (occurrence: FR)
  Receive Date: 20250421
  Receipt Date: 20250421
  Transmission Date: 20250716
  Serious: Yes (Hospitalization)
  Sender: PURDUE
  Company Number: None

PATIENT
  Age: 51 Year
  Sex: Male
  Weight: 93 kg

DRUGS (5)
  1. OXYCONTIN [Suspect]
     Active Substance: OXYCODONE HYDROCHLORIDE
     Indication: Pain
     Route: 048
     Dates: end: 20250314
  2. OPDIVO [Suspect]
     Active Substance: NIVOLUMAB
     Indication: Clear cell renal cell carcinoma
     Route: 042
     Dates: start: 20250306
  3. YERVOY [Suspect]
     Active Substance: IPILIMUMAB
     Indication: Clear cell renal cell carcinoma
     Route: 042
     Dates: start: 20250306, end: 20250306
  4. PIPERACILLIN SODIUM [Suspect]
     Active Substance: PIPERACILLIN SODIUM
     Indication: Antibiotic therapy
     Route: 042
     Dates: start: 20250314
  5. TAZOBACTAM [Suspect]
     Active Substance: TAZOBACTAM
     Indication: Antibiotic therapy
     Route: 042
     Dates: start: 20250314

REACTIONS (2)
  - Somnolence [Recovered/Resolved]
  - Disorientation [Recovering/Resolving]

NARRATIVE: CASE EVENT DATE: 20250313
